FAERS Safety Report 8590948-9 (Version None)
Quarter: 2012Q3

REPORT INFORMATION
  Report Type: 
  Country: None (occurrence: None)
  Receive Date: 20120813
  Receipt Date: 20120802
  Transmission Date: 20120928
  Serious: Yes (Hospitalization)
  Sender: FDA-Public Use
  Company Number: DE-CELGENEUS-062-21660-12063792

PATIENT
  Age: 76 Year
  Sex: Female
  Weight: 78 kg

DRUGS (6)
  1. ABRAXANE [Suspect]
     Indication: BREAST CANCER
     Route: 041
     Dates: start: 20120612, end: 20120626
  2. CAPECITABINE [Suspect]
     Dosage: 2000 MILLIGRAM
     Route: 048
     Dates: start: 20120612
  3. METOPROLOL TARTRATE [Concomitant]
     Route: 065
  4. CAPECITABINE [Suspect]
     Indication: BREAST CANCER
     Dosage: 2000 MILLIGRAM
     Route: 048
     Dates: start: 20120612, end: 20120626
  5. RAMIPRIL [Concomitant]
     Route: 065
  6. SIMVASTATIN [Concomitant]
     Route: 065

REACTIONS (1)
  - SYNCOPE [None]
